FAERS Safety Report 16458551 (Version 1)
Quarter: 2019Q2

REPORT INFORMATION
  Report Type: Spontaneous
  Country: US (occurrence: US)
  Receive Date: 20190620
  Receipt Date: 20190620
  Transmission Date: 20190711
  Serious: No
  Sender: FDA-Public Use
  Company Number: US-THERAPEUTICSMD-2019TMD00450

PATIENT
  Age: 71 Year
  Sex: Female
  Weight: 68.03 kg

DRUGS (5)
  1. IMVEXXY [Suspect]
     Active Substance: ESTRADIOL
     Indication: VULVOVAGINAL DRYNESS
     Dosage: 10 ?G, AS NEEDED (^USED THREE IN 2 WEEKS^) AT NIGHT
     Route: 067
     Dates: start: 201903, end: 2019
  2. LOSARTAN. [Concomitant]
     Active Substance: LOSARTAN
  3. SYNTHROID [Concomitant]
     Active Substance: LEVOTHYROXINE SODIUM
  4. PRAVASTATIN. [Concomitant]
     Active Substance: PRAVASTATIN
  5. OXYBUTYNIN. [Concomitant]
     Active Substance: OXYBUTYNIN CHLORIDE

REACTIONS (6)
  - Off label use [Recovered/Resolved]
  - Inappropriate schedule of product administration [Recovered/Resolved]
  - Contraindicated product prescribed [Recovered/Resolved]
  - Breast tenderness [Unknown]
  - Breast cyst [Recovered/Resolved]
  - Breast pain [Unknown]

NARRATIVE: CASE EVENT DATE: 201903
